FAERS Safety Report 7350682-X (Version None)
Quarter: 2011Q1

REPORT INFORMATION
  Report Type: 
  Country: None (occurrence: None)
  Receive Date: 20110222
  Receipt Date: 20101201
  Transmission Date: 20110831
  Serious: No
  Sender: FDA-Public Use
  Company Number: 021334

PATIENT
  Sex: Male
  Weight: 88.9 kg

DRUGS (3)
  1. LACOSAMIDE [Suspect]
     Indication: CONVULSION
     Dosage: (100 MG BID ORAL)
     Route: 048
     Dates: start: 20100922
  2. DEPAKOTE [Suspect]
     Indication: CONVULSION
     Dosage: (1500 MG QD ORAL)
     Route: 048
     Dates: start: 20100501
  3. TEGRETOL [Suspect]
     Indication: CONVULSION
     Dosage: (150 MG BID ORAL)
     Route: 048

REACTIONS (2)
  - PARTIAL SEIZURES [None]
  - CONVULSION [None]
